FAERS Safety Report 5835464-X (Version None)
Quarter: 2008Q3

REPORT INFORMATION
  Report Type: 
  Country: None (occurrence: None)
  Receive Date: 20080806
  Receipt Date: 20080715
  Transmission Date: 20090109
  Serious: Yes (Hospitalization)
  Sender: FDA-Public Use
  Company Number: US-AVENTIS-200718361US

PATIENT
  Sex: Female
  Weight: 103.18 kg

DRUGS (5)
  1. KETEK [Suspect]
     Indication: COUGH
     Dates: start: 20051004, end: 20051001
  2. KETEK [Suspect]
     Indication: ACUTE SINUSITIS
     Dates: start: 20051004, end: 20051001
  3. KETEK [Suspect]
     Indication: OTITIS MEDIA
     Dates: start: 20051004, end: 20051001
  4. SUDAFED 12 HOUR [Concomitant]
     Dosage: DOSE: OVER THE COUNTER
     Dates: start: 20051004
  5. XANAX [Concomitant]
     Dosage: DOSE: 0.25 MG Q8H PRN
     Dates: start: 20051004

REACTIONS (14)
  - ANTINUCLEAR ANTIBODY INCREASED [None]
  - AUTOIMMUNE HEPATITIS [None]
  - COAGULOPATHY [None]
  - COLD SWEAT [None]
  - DYSPNOEA [None]
  - FAECES PALE [None]
  - HEPATIC ENZYME INCREASED [None]
  - HEPATIC STEATOSIS [None]
  - JAUNDICE [None]
  - NAUSEA [None]
  - OCULAR ICTERUS [None]
  - PAINFUL RESPIRATION [None]
  - VOMITING [None]
  - YELLOW SKIN [None]
